FAERS Safety Report 24049987 (Version 3)
Quarter: 2024Q3

REPORT INFORMATION
  Report Type: Report from Study
  Country: FR (occurrence: FR)
  Receive Date: 20240704
  Receipt Date: 20240726
  Transmission Date: 20241017
  Serious: Yes (Hospitalization, Other)
  Sender: STEMLINE THERAPEUTICS
  Company Number: FR-Stemline Therapeutics, Inc.-2024ST004032

PATIENT
  Age: 78 Year
  Sex: Female
  Weight: 51 kg

DRUGS (8)
  1. ELACESTRANT [Suspect]
     Active Substance: ELACESTRANT
     Indication: Breast cancer
     Route: 048
     Dates: start: 20240529, end: 20240611
  2. SAMURACICLIB [Suspect]
     Active Substance: SAMURACICLIB
     Indication: Breast cancer
     Route: 048
     Dates: start: 20240529, end: 20240607
  3. CANDESARTAN [Concomitant]
     Active Substance: CANDESARTAN
     Indication: Hypertension
     Dosage: 4 MG, EVERY 1 DAYS
     Dates: start: 2022
  4. ACETYLLEUCINE, L- [Concomitant]
     Active Substance: ACETYLLEUCINE, L-
     Indication: Vertigo
     Dosage: 500 MG, AS NECESSARY
  5. KARDEGIC [Concomitant]
     Active Substance: ASPIRIN DL-LYSINE
     Indication: Arteritis
     Dosage: 75 MG, EVERY 1 DAYS
  6. ONDANSETRON [Concomitant]
     Active Substance: ONDANSETRON
     Indication: Antiemetic supportive care
     Dosage: 8 MG, 2/DAYS
     Dates: start: 20240529
  7. VOGALENE [Concomitant]
     Active Substance: METOPIMAZINE
     Indication: Antiemetic supportive care
     Dosage: 7.5 MG, 4/DAYS
     Dates: start: 20240529, end: 20240603
  8. PRIMPERAN [Concomitant]
     Active Substance: METOCLOPRAMIDE HYDROCHLORIDE
     Indication: Antiemetic supportive care
     Dosage: 10 MG, 3/DAYS
     Dates: start: 20240603

REACTIONS (1)
  - Malnutrition [Not Recovered/Not Resolved]

NARRATIVE: CASE EVENT DATE: 20240619
